FAERS Safety Report 12509624 (Version 6)
Quarter: 2016Q3

REPORT INFORMATION
  Report Type: Report from Study
  Country: CO (occurrence: CO)
  Receive Date: 20160629
  Receipt Date: 20160729
  Transmission Date: 20161109
  Serious: Yes (Hospitalization, Other)
  Sender: FDA-Public Use
  Company Number: PHHY2016CO057491

PATIENT
  Sex: Female
  Weight: 50 kg

DRUGS (1)
  1. TASIGNA [Suspect]
     Active Substance: NILOTINIB
     Indication: CHRONIC MYELOID LEUKAEMIA
     Dosage: 200 MG, BID
     Route: 048
     Dates: start: 20150311

REACTIONS (14)
  - General physical health deterioration [Unknown]
  - Pyrexia [Not Recovered/Not Resolved]
  - Malignant neoplasm progression [Unknown]
  - Immunodeficiency [Unknown]
  - Cervix carcinoma [Unknown]
  - Chronic myeloid leukaemia recurrent [Unknown]
  - Haematemesis [Recovering/Resolving]
  - Second primary malignancy [Unknown]
  - Pain in extremity [Unknown]
  - Chest pain [Recovering/Resolving]
  - Pneumonia [Recovering/Resolving]
  - Chills [Unknown]
  - Chronic myeloid leukaemia [Unknown]
  - Papilloma viral infection [Unknown]
